FAERS Safety Report 4289593-5 (Version None)
Quarter: 2004Q1

REPORT INFORMATION
  Report Type: 
  Country: None (occurrence: None)
  Receive Date: 20040205
  Receipt Date: 20040115
  Transmission Date: 20041129
  Serious: Yes (Death, Other)
  Sender: FDA-Public Use
  Company Number: WAES 0311USA00937

PATIENT
  Age: 61 Year
  Sex: Male

DRUGS (9)
  1. ZOCOR [Suspect]
     Indication: HYPERLIPIDAEMIA
     Dosage: SEE IMAGE
     Route: 048
     Dates: start: 19930517, end: 19940514
  2. ZOCOR [Suspect]
     Indication: HYPERLIPIDAEMIA
     Dosage: SEE IMAGE
     Route: 048
     Dates: start: 19941217, end: 19950411
  3. ZOCOR [Suspect]
     Indication: HYPERLIPIDAEMIA
     Dosage: SEE IMAGE
     Route: 048
     Dates: start: 19951028, end: 19980425
  4. ZOCOR [Suspect]
     Indication: HYPERLIPIDAEMIA
     Dosage: SEE IMAGE
     Route: 048
     Dates: start: 19980919, end: 20020209
  5. BUFFERIN [Concomitant]
  6. ISOSRIBDE DINITRATE [Concomitant]
  7. NISOLDIPINE [Concomitant]
  8. NISOLDIPINE [Concomitant]
  9. NIZATDINE [Concomitant]

REACTIONS (5)
  - CARDIAC FAILURE [None]
  - LUNG NEOPLASM MALIGNANT [None]
  - LYMPH NODE CANCER METASTATIC [None]
  - METASTASES TO LYMPH NODES [None]
  - RESPIRATORY FAILURE [None]
